FAERS Safety Report 17178748 (Version 1)
Quarter: 2019Q4

REPORT INFORMATION
  Report Type: Spontaneous
  Country: PL (occurrence: PL)
  Receive Date: 20191219
  Receipt Date: 20191219
  Transmission Date: 20200122
  Serious: Yes (Hospitalization, Other)
  Sender: FDA-Public Use
  Company Number: PL-ACCORD-166129

PATIENT
  Age: 72 Year
  Sex: Male

DRUGS (2)
  1. METHOTREXATE. [Suspect]
     Active Substance: METHOTREXATE
     Indication: PSORIASIS
  2. FOLIC ACID. [Concomitant]
     Active Substance: FOLIC ACID
     Indication: PSORIASIS

REACTIONS (12)
  - Renal failure [Recovering/Resolving]
  - Hypoalbuminaemia [Unknown]
  - Inflammatory marker increased [Recovering/Resolving]
  - Pancytopenia [Recovering/Resolving]
  - Overdose [Unknown]
  - Hyperbilirubinaemia [Unknown]
  - Incorrect dose administered [Unknown]
  - Oral mucosa erosion [Unknown]
  - Coagulopathy [Unknown]
  - Cognitive disorder [Unknown]
  - Agranulocytosis [Recovering/Resolving]
  - Rash macular [Unknown]
